FAERS Safety Report 15918699 (Version 1)
Quarter: 2019Q1

REPORT INFORMATION
  Report Type: Spontaneous
  Country: FI (occurrence: FI)
  Receive Date: 20190205
  Receipt Date: 20190205
  Transmission Date: 20190417
  Serious: Yes (Life-Threatening, Other)
  Sender: FDA-Public Use
  Company Number: FI-MYLANLABS-2019M1007495

PATIENT
  Age: 50 Year
  Sex: Male

DRUGS (8)
  1. GRANISETRON [Concomitant]
     Active Substance: GRANISETRON
     Indication: PROPHYLAXIS OF NAUSEA AND VOMITING
     Dosage: UNK
  2. DEXAMETHASONE. [Concomitant]
     Active Substance: DEXAMETHASONE
     Indication: PROPHYLAXIS OF NAUSEA AND VOMITING
     Dosage: UNK
  3. INTERFERON ALFA NOS [Interacting]
     Active Substance: INTERFERON ALFA-2A OR INTERFERON ALFA-2B
     Dosage: UNK, CYCLE (UNK, CYCLIC (EIGHT CYCLES) )
  4. VINBLASTINE [Concomitant]
     Active Substance: VINBLASTINE
     Indication: METASTATIC RENAL CELL CARCINOMA
     Dosage: UNK UNK, CYCLE (UNK, CYCLIC (EIGHT CYCLES))
  5. GEMCITABINE [Suspect]
     Active Substance: GEMCITABINE\GEMCITABINE HYDROCHLORIDE
     Indication: RENAL CELL CARCINOMA
     Dosage: UNK UNK, CYCLIC
     Route: 042
  6. GEMCITABINE [Interacting]
     Active Substance: GEMCITABINE\GEMCITABINE HYDROCHLORIDE
     Indication: METASTATIC RENAL CELL CARCINOMA
     Dosage: UNK UNK, CYCLE (UNK, CYCLIC (FIRST CYCLE))
     Route: 058
  7. GEMCITABINE [Interacting]
     Active Substance: GEMCITABINE\GEMCITABINE HYDROCHLORIDE
     Dosage: 1000 MILLIGRAM/SQ. METER, CYCLE
     Route: 042
  8. INTERFERON ALFA NOS [Interacting]
     Active Substance: INTERFERON ALFA-2A OR INTERFERON ALFA-2B
     Indication: METASTATIC RENAL CELL CARCINOMA
     Dosage: 10000000 INTERNATIONAL UNIT, 3XW
     Route: 058

REACTIONS (2)
  - Capillary leak syndrome [Recovering/Resolving]
  - Drug interaction [Recovering/Resolving]
